FAERS Safety Report 7659811-1 (Version None)
Quarter: 2011Q3

REPORT INFORMATION
  Report Type: 
  Country: None (occurrence: None)
  Receive Date: 20110805
  Receipt Date: 20110803
  Transmission Date: 20111222
  Serious: Yes (Hospitalization, Other)
  Sender: FDA-Public Use
  Company Number: JP-PFIZER INC-2011154893

PATIENT
  Age: 66 Year
  Sex: Female

DRUGS (1)
  1. ZOLOFT [Suspect]
     Dosage: 25 MG/DAY
     Route: 048

REACTIONS (4)
  - ALCOHOLISM [None]
  - HYPOKALAEMIA [None]
  - ALTERED STATE OF CONSCIOUSNESS [None]
  - RHABDOMYOLYSIS [None]
